FAERS Safety Report 14002519 (Version 1)
Quarter: 2017Q3

REPORT INFORMATION
  Report Type: Spontaneous
  Country: US (occurrence: US)
  Receive Date: 20170922
  Receipt Date: 20170922
  Transmission Date: 20171128
  Serious: No
  Sender: FDA-Public Use
  Company Number: US-AMGEN-USASP2016127357

PATIENT
  Age: 60 Year
  Sex: Female

DRUGS (4)
  1. NEUPOGEN [Suspect]
     Active Substance: FILGRASTIM
     Indication: PRODUCT USED FOR UNKNOWN INDICATION
     Dosage: 480 MCG, QD (ONCE DAILY STARTING 24 HOURS AFTER THE CHEMOTHERAPY FOR THREE DAYS)
     Route: 065
     Dates: start: 201606, end: 2016
  2. BENADRYL [Concomitant]
     Active Substance: DIPHENHYDRAMINE HYDROCHLORIDE
     Dosage: UNK
  3. CARBOPLATIN. [Suspect]
     Active Substance: CARBOPLATIN
     Indication: ENDOMETRIAL CANCER METASTATIC
     Dosage: UNK, Q3WK
     Route: 065
     Dates: start: 20160602
  4. TAXOL [Suspect]
     Active Substance: PACLITAXEL
     Indication: ENDOMETRIAL CANCER METASTATIC
     Dosage: UNK, Q3WK
     Route: 065
     Dates: start: 20160602

REACTIONS (5)
  - Neuropathy peripheral [Unknown]
  - Bone pain [Unknown]
  - Mobility decreased [Unknown]
  - Arthritis [Unknown]
  - Fatigue [Unknown]

NARRATIVE: CASE EVENT DATE: 201606
